FAERS Safety Report 22340501 (Version 1)
Quarter: 2023Q2

REPORT INFORMATION
  Report Type: Spontaneous
  Country: US (occurrence: US)
  Receive Date: 20230518
  Receipt Date: 20230518
  Transmission Date: 20230722
  Serious: Yes (Other)
  Sender: FDA-Public Use
  Company Number: US-TEVA-2023-US-2888641

PATIENT
  Age: 31 Year
  Sex: Female

DRUGS (3)
  1. URSODIOL [Suspect]
     Active Substance: URSODIOL
     Indication: Cholestasis of pregnancy
     Dosage: 900 MILLIGRAM DAILY;
     Route: 065
  2. URSODIOL [Suspect]
     Active Substance: URSODIOL
     Dosage: 1500 MILLIGRAM DAILY; 500 MG 3 TIMES DAILY
  3. FENOFIBRATE [Suspect]
     Active Substance: FENOFIBRATE
     Indication: Cholestasis of pregnancy
     Dosage: 160 MG DAILY

REACTIONS (2)
  - Stillbirth [Unknown]
  - Maternal exposure during pregnancy [Unknown]
